FAERS Safety Report 5423951-8 (Version None)
Quarter: 2007Q3

REPORT INFORMATION
  Report Type: 
  Country: None (occurrence: None)
  Receive Date: 20070727
  Receipt Date: 20060710
  Transmission Date: 20080115
  Serious: Yes (Death, Hospitalization)
  Sender: FDA-Public Use
  Company Number: THYM-10985

PATIENT
  Age: 78 Year
  Sex: Male
  Weight: 69.4 kg

DRUGS (4)
  1. THYMOGLOBULIN [Suspect]
     Indication: RENAL TRANSPLANT
     Dosage: 100 MG QD IV
     Route: 042
     Dates: start: 20041216, end: 20041220
  2. NEORAL [Concomitant]
  3. CELLCEPT [Concomitant]
  4. PREDNISONE [Concomitant]

REACTIONS (10)
  - ANXIETY [None]
  - BLEEDING TIME ABNORMAL [None]
  - BLOOD DISORDER [None]
  - CERVICAL CORD COMPRESSION [None]
  - CONFUSIONAL STATE [None]
  - HAEMOGLOBIN DECREASED [None]
  - INFECTION [None]
  - PARALYSIS [None]
  - POST PROCEDURAL HAEMATOMA [None]
  - RESPIRATORY FAILURE [None]
